FAERS Safety Report 7201381-6 (Version None)
Quarter: 2010Q4

REPORT INFORMATION
  Report Type: 
  Country: None (occurrence: None)
  Receive Date: 20101229
  Receipt Date: 20101216
  Transmission Date: 20110411
  Serious: Yes (Hospitalization)
  Sender: FDA-Public Use
  Company Number: TR-US-EMD SERONO, INC.-7032275

PATIENT
  Sex: Female

DRUGS (1)
  1. OVITRELLE [Suspect]
     Indication: OVULATION INDUCTION
     Route: 058
     Dates: start: 20101010, end: 20101010

REACTIONS (1)
  - SUBARACHNOID HAEMORRHAGE [None]
